FAERS Safety Report 11443824 (Version 4)
Quarter: 2015Q3

REPORT INFORMATION
  Report Type: Spontaneous
  Country: DE (occurrence: DE)
  Receive Date: 20150901
  Receipt Date: 20150929
  Transmission Date: 20151125
  Serious: Yes (Other)
  Sender: FDA-Public Use
  Company Number: DE-AMGEN-DEUSP2015087263

PATIENT
  Age: 75 Year
  Sex: Male

DRUGS (11)
  1. PROLIA [Suspect]
     Active Substance: DENOSUMAB
     Indication: PROSTATE CANCER
     Dosage: 60 MG, UNK
     Route: 058
     Dates: start: 20140403, end: 20140403
  2. XGEVA [Suspect]
     Active Substance: DENOSUMAB
     Indication: METASTASES TO BONE
  3. ZYTIGA [Concomitant]
     Active Substance: ABIRATERONE ACETATE
     Dosage: UNK
     Dates: start: 201406, end: 201411
  4. PROLIA [Suspect]
     Active Substance: DENOSUMAB
     Indication: METASTASES TO BONE
  5. ZOLADEX [Concomitant]
     Active Substance: GOSERELIN ACETATE
     Indication: PROSTATE CANCER
     Dosage: 10.8 MG, Q4WK
     Route: 058
     Dates: start: 201310, end: 201508
  6. BICALUTAMID [Concomitant]
     Active Substance: BICALUTAMIDE
     Dosage: UNK
     Dates: start: 2011, end: 201310
  7. XTANDI [Concomitant]
     Active Substance: ENZALUTAMIDE
     Indication: PROSTATE CANCER
     Dosage: 40 MG, QD
     Route: 048
     Dates: start: 201412, end: 201509
  8. XGEVA [Suspect]
     Active Substance: DENOSUMAB
     Indication: PROSTATE CANCER METASTATIC
     Dosage: 120 MG, Q4WK
     Route: 058
     Dates: start: 201405
  9. RHUBARB. [Concomitant]
     Active Substance: RHUBARB
  10. CALCIUM + VITAMIN D                /00944201/ [Suspect]
     Active Substance: CALCIUM\VITAMIN D
     Indication: PRODUCT USED FOR UNKNOWN INDICATION
     Dosage: 1000MG/1000IE
     Route: 065
  11. FLUTAMIDE. [Concomitant]
     Active Substance: FLUTAMIDE

REACTIONS (3)
  - Device occlusion [Recovered/Resolved]
  - Nephrolithiasis [Recovering/Resolving]
  - Crystal urine [Unknown]

NARRATIVE: CASE EVENT DATE: 20150824
